FAERS Safety Report 16686939 (Version 2)
Quarter: 2019Q3

REPORT INFORMATION
  Report Type: Spontaneous
  Country: FR (occurrence: FR)
  Receive Date: 20190809
  Receipt Date: 20190830
  Transmission Date: 20191004
  Serious: Yes (Hospitalization)
  Sender: FDA-Public Use
  Company Number: FR-TEVA-2019-FR-1090379

PATIENT
  Age: 72 Year
  Sex: Male
  Weight: 108 kg

DRUGS (11)
  1. PREVISCAN [Concomitant]
     Route: 048
  2. LOXEN [Concomitant]
  3. LASILIX [Concomitant]
     Active Substance: FUROSEMIDE
     Route: 048
     Dates: end: 20120503
  4. METFORMINE [Suspect]
     Active Substance: METFORMIN HYDROCHLORIDE
     Route: 048
     Dates: end: 20120503
  5. JANUVIA [Suspect]
     Active Substance: SITAGLIPTIN PHOSPHATE
     Route: 048
     Dates: start: 201204, end: 20120503
  6. RAMIPRIL. [Concomitant]
     Active Substance: RAMIPRIL
     Dosage: UNK
     Route: 048
  7. LOPRESSOR [Suspect]
     Active Substance: METOPROLOL TARTRATE
     Route: 048
     Dates: end: 20120503
  8. AMIODARONE [Concomitant]
     Active Substance: AMIODARONE
     Dosage: UNK
     Route: 048
  9. DIAMICRON [Suspect]
     Active Substance: GLICLAZIDE
     Route: 048
     Dates: end: 20120503
  10. POTASSIUM CHLORIDE. [Concomitant]
     Active Substance: POTASSIUM CHLORIDE
  11. LEVOTHYROX [Concomitant]
     Active Substance: LEVOTHYROXINE
     Route: 048

REACTIONS (1)
  - Acute kidney injury [Recovered/Resolved]

NARRATIVE: CASE EVENT DATE: 20120503
